FAERS Safety Report 23231463 (Version 1)
Quarter: 2023Q4

REPORT INFORMATION
  Report Type: Spontaneous
  Country: US (occurrence: US)
  Receive Date: 20231127
  Receipt Date: 20231127
  Transmission Date: 20240110
  Serious: No
  Sender: FDA-Public Use
  Company Number: US-AVADEL CNS PHARMACEUTICALS, LLC-2023AVA00235

PATIENT
  Sex: Female

DRUGS (3)
  1. LUMRYZ [Suspect]
     Active Substance: SODIUM OXYBATE
     Dosage: 7.5 G
     Dates: start: 20230726, end: 20230831
  2. LUMRYZ [Suspect]
     Active Substance: SODIUM OXYBATE
     Indication: Narcolepsy
     Dosage: 9 G, 1X/DAY, ONCE NIGHTLY
     Dates: start: 20230901, end: 2023
  3. LUMRYZ [Suspect]
     Active Substance: SODIUM OXYBATE
     Dosage: 9 G, 1X/DAY, ONCE NIGHTLY
     Dates: start: 20231002

REACTIONS (12)
  - Dyskinesia [Recovered/Resolved]
  - Disorganised speech [Recovered/Resolved]
  - Compulsive shopping [Recovered/Resolved]
  - Thinking abnormal [Recovered/Resolved]
  - Moaning [Recovered/Resolved]
  - Restlessness [Recovered/Resolved]
  - Insomnia [Recovered/Resolved]
  - Motor dysfunction [Unknown]
  - Speech disorder [Unknown]
  - Memory impairment [Recovered/Resolved]
  - Enuresis [Recovered/Resolved]
  - Intentional dose omission [Recovered/Resolved]

NARRATIVE: CASE EVENT DATE: 20230101
